FAERS Safety Report 7091119-8 (Version None)
Quarter: 2010Q4

REPORT INFORMATION
  Report Type: 
  Country: None (occurrence: None)
  Receive Date: 20101109
  Receipt Date: 20101028
  Transmission Date: 20110411
  Serious: Yes (Other)
  Sender: FDA-Public Use
  Company Number: JP-ROCHE-689214

PATIENT
  Sex: Female
  Weight: 52 kg

DRUGS (6)
  1. PEGASYS [Suspect]
     Indication: HEPATITIS C
     Route: 058
     Dates: start: 20091110, end: 20100301
  2. PEGASYS [Suspect]
     Dosage: DOSE DECREASED
     Route: 058
     Dates: start: 20100302
  3. COPEGUS [Suspect]
     Indication: HEPATITIS C
     Route: 048
     Dates: start: 20091110
  4. URSO 250 [Concomitant]
     Route: 049
  5. TAKEPRON [Concomitant]
     Route: 048
  6. THYRADIN [Concomitant]
     Route: 048

REACTIONS (1)
  - CARDIAC TAMPONADE [None]
